FAERS Safety Report 23567494 (Version 1)
Quarter: 2024Q1

REPORT INFORMATION
  Report Type: Spontaneous
  Country: DE (occurrence: DE)
  Receive Date: 20240226
  Receipt Date: 20240226
  Transmission Date: 20240409
  Serious: Yes (Life-Threatening, Hospitalization)
  Sender: FDA-Public Use
  Company Number: DE-DCGMA-24202886

PATIENT
  Age: 74 Year
  Sex: Male
  Weight: 80 kg

DRUGS (6)
  1. ERBITUX [Suspect]
     Active Substance: CETUXIMAB
     Indication: Colorectal cancer metastatic
     Dosage: 300 MG, UNKNOWN
     Route: 042
  2. ERBITUX [Suspect]
     Active Substance: CETUXIMAB
     Dosage: 500 MG, UNKNOWN
     Route: 042
  3. RAMIPRIL [Concomitant]
     Active Substance: RAMIPRIL
     Indication: Product used for unknown indication
     Dosage: 10 MG, BID
     Route: 048
  4. PANTOPRAZOLE [Concomitant]
     Active Substance: PANTOPRAZOLE
     Indication: Product used for unknown indication
     Dosage: 40 MG, UNK
     Route: 048
  5. SIMVASTATIN [Concomitant]
     Active Substance: SIMVASTATIN
     Indication: Product used for unknown indication
     Dosage: 20 MG, UNK
     Route: 048
  6. METAMIZOLE [Concomitant]
     Active Substance: METAMIZOLE
     Indication: Product used for unknown indication
     Dosage: UNK
     Route: 048

REACTIONS (4)
  - Urticaria [Unknown]
  - Anaphylactic reaction [Unknown]
  - Dermatitis allergic [Unknown]
  - Bronchospasm [Unknown]

NARRATIVE: CASE EVENT DATE: 20240122
